FAERS Safety Report 7600079-X (Version None)
Quarter: 2011Q3

REPORT INFORMATION
  Report Type: 
  Country: None (occurrence: None)
  Receive Date: 20110711
  Receipt Date: 20110630
  Transmission Date: 20111222
  Serious: Yes (Other)
  Sender: FDA-Public Use
  Company Number: FR-JNJFOC-20110701997

PATIENT
  Age: 48 Year
  Sex: Female

DRUGS (3)
  1. RISPERDAL CONSTA [Suspect]
     Indication: ABNORMAL BEHAVIOUR
     Route: 030
     Dates: start: 20090601
  2. ABILIFY [Concomitant]
     Route: 065
  3. LEPTICUR [Concomitant]
     Route: 065

REACTIONS (3)
  - ARRHYTHMIA [None]
  - BRADYCARDIA [None]
  - INAPPROPRIATE SCHEDULE OF DRUG ADMINISTRATION [None]
